FAERS Safety Report 6460979-3 (Version None)
Quarter: 2009Q4

REPORT INFORMATION
  Report Type: 
  Country: None (occurrence: None)
  Receive Date: 20091130
  Receipt Date: 20091118
  Transmission Date: 20100525
  Serious: Yes (Congenital Anomaly)
  Sender: FDA-Public Use
  Company Number: A0817741A

PATIENT
  Sex: Female

DRUGS (3)
  1. PAXIL [Suspect]
  2. MORPHINE [Concomitant]
  3. OTHER MEDICATIONS [Concomitant]

REACTIONS (3)
  - CONGENITAL ANOMALY [None]
  - DRUG EXPOSURE DURING PREGNANCY [None]
  - SYNDACTYLY [None]
